FAERS Safety Report 8739384 (Version 2)
Quarter: 2012Q4

REPORT INFORMATION
  Report Type: 
  Country: GB (occurrence: GB)
  Receive Date: 20120823
  Receipt Date: 20120914
  Transmission Date: 20130627
  Serious: Yes (Other)
  Sender: FDA-Public Use
  Company Number: GB-ELI_LILLY_AND_COMPANY-GB201208003950

PATIENT
  Sex: Female

DRUGS (7)
  1. FORSTEO [Suspect]
     Dosage: 20 ug, qd
     Route: 058
     Dates: start: 201112
  2. ATENOLOL [Concomitant]
  3. IRBESARTAN [Concomitant]
  4. OMEPRAZOLE [Concomitant]
  5. DIPYRIDAMOLE [Concomitant]
  6. PARACETAMOL [Concomitant]
  7. VITAMIN D [Concomitant]

REACTIONS (3)
  - Hiatus hernia [Recovered/Resolved]
  - Urinary tract infection [Recovered/Resolved]
  - Myalgia [Recovered/Resolved]
